FAERS Safety Report 6567106-2 (Version None)
Quarter: 2010Q1

REPORT INFORMATION
  Report Type: 
  Country: None (occurrence: None)
  Receive Date: 20100127
  Receipt Date: 20100114
  Transmission Date: 20100710
  Serious: Yes (Hospitalization)
  Sender: FDA-Public Use
  Company Number: 1000011425

PATIENT
  Age: 41 Year
  Sex: Female

DRUGS (4)
  1. ESCITALOPRAM OXALATE [Suspect]
     Indication: ANXIETY
     Dosage: 20 MG, (10 MG, 2 IN 1 D), ORAL 240 MG (240 MG, ONCE) ORAL
     Route: 048
     Dates: start: 20080101, end: 20090307
  2. ESCITALOPRAM OXALATE [Suspect]
     Indication: ANXIETY
     Dosage: 20 MG, (10 MG, 2 IN 1 D), ORAL 240 MG (240 MG, ONCE) ORAL
     Route: 048
     Dates: start: 20090307, end: 20090307
  3. ANSIOLIN [Suspect]
     Dosage: ORAL HALF A BOTTLE - (ONCE) ORAL
     Route: 048
     Dates: start: 20090307, end: 20090307
  4. ANSIOLIN [Suspect]
     Dosage: ORAL HALF A BOTTLE - (ONCE) ORAL
     Route: 048
     Dates: start: 20090101

REACTIONS (5)
  - DIZZINESS [None]
  - INTENTIONAL OVERDOSE [None]
  - SOPOR [None]
  - SUICIDE ATTEMPT [None]
  - VOMITING [None]
